FAERS Safety Report 21090109 (Version 4)
Quarter: 2022Q3

REPORT INFORMATION
  Report Type: Spontaneous
  Country: JP (occurrence: JP)
  Receive Date: 20220715
  Receipt Date: 20220909
  Transmission Date: 20221027
  Serious: Yes (Other)
  Sender: FDA-Public Use
  Company Number: JP-NEUROCRINE BIOSCIENCES INC.-2022NBI04668

PATIENT

DRUGS (6)
  1. VALBENAZINE [Suspect]
     Active Substance: VALBENAZINE
     Indication: Tardive dyskinesia
     Dosage: 40 MILLIGRAM, QD
     Route: 048
     Dates: start: 20220621, end: 20220704
  2. CHLORPROMAZINE HYDROCHLORIDE [Suspect]
     Active Substance: CHLORPROMAZINE HYDROCHLORIDE
     Indication: Mania
     Dosage: 100 MILLIGRAM, QD
     Route: 048
     Dates: start: 20160411
  3. CHLORPROMAZINE HYDROCHLORIDE [Suspect]
     Active Substance: CHLORPROMAZINE HYDROCHLORIDE
     Indication: Insomnia
  4. PHENOBARBITAL [Concomitant]
     Active Substance: PHENOBARBITAL
     Dosage: UNK
     Dates: start: 20160411
  5. TRIAZOLAM [Concomitant]
     Active Substance: TRIAZOLAM
     Indication: Insomnia
     Dosage: UNK
     Dates: start: 20160411
  6. CLONAZEPAM [Concomitant]
     Active Substance: CLONAZEPAM
     Indication: Tardive dyskinesia
     Dosage: UNK
     Dates: start: 20220329

REACTIONS (4)
  - Blood pressure increased [Recovering/Resolving]
  - Dysarthria [Unknown]
  - Tardive dyskinesia [Unknown]
  - Gait disturbance [Unknown]

NARRATIVE: CASE EVENT DATE: 20220623
